FAERS Safety Report 14104946 (Version 1)
Quarter: 2017Q4

REPORT INFORMATION
  Report Type: Spontaneous
  Country: JP (occurrence: JP)
  Receive Date: 20171018
  Receipt Date: 20171018
  Transmission Date: 20180321
  Serious: Yes (Other)
  Sender: FDA-Public Use
  Company Number: US-ASTRAZENECA-2017SF06197

PATIENT
  Sex: Male

DRUGS (3)
  1. URALYT [Concomitant]
     Active Substance: POTASSIUM CITRATE\TRISODIUM CITRATE DIHYDRATE
     Dosage: UNK
     Route: 065
  2. BLOPRESS [Suspect]
     Active Substance: CANDESARTAN CILEXETIL
     Indication: PRODUCT USED FOR UNKNOWN INDICATION
     Dosage: UNK
     Route: 048
  3. POTASSIUM CITRATE, SODIUM CITRATE HYDRATE [Concomitant]
     Dosage: UNK
     Route: 065

REACTIONS (1)
  - Seizure [Unknown]
